FAERS Safety Report 21888297 (Version 1)
Quarter: 2023Q1

REPORT INFORMATION
  Report Type: Report from Study
  Country: US (occurrence: US)
  Receive Date: 20230120
  Receipt Date: 20230120
  Transmission Date: 20230418
  Serious: No
  Sender: FDA-Public Use
  Company Number: US-ABBVIE-4242445

PATIENT
  Sex: Male

DRUGS (2)
  1. RINVOQ [Suspect]
     Active Substance: UPADACITINIB
     Indication: Exposure to communicable disease
     Route: 048
     Dates: start: 202212, end: 202212
  2. RINVOQ [Suspect]
     Active Substance: UPADACITINIB
     Indication: Exposure to communicable disease
     Route: 048
     Dates: start: 20221213, end: 20221213

REACTIONS (1)
  - Chest pain [Recovered/Resolved]
